FAERS Safety Report 11181875 (Version 2)
Quarter: 2015Q3

REPORT INFORMATION
  Report Type: Spontaneous
  Country: US (occurrence: US)
  Receive Date: 20150611
  Receipt Date: 20150827
  Transmission Date: 20151125
  Serious: Yes (Hospitalization, Other)
  Sender: FDA-Public Use
  Company Number: US-BAYER-2015-328417

PATIENT
  Age: 30 Year
  Sex: Female
  Weight: 69.84 kg

DRUGS (1)
  1. MIRENA [Suspect]
     Active Substance: LEVONORGESTREL
     Indication: CONTRACEPTION
     Dosage: 20 MCG/24HR, CONT
     Route: 015
     Dates: start: 20091112, end: 20110616

REACTIONS (7)
  - Anxiety [None]
  - Device issue [None]
  - Abdominal pain [None]
  - Medical device pain [None]
  - Uterine perforation [None]
  - Pelvic inflammatory disease [None]
  - Injury [None]

NARRATIVE: CASE EVENT DATE: 201106
